FAERS Safety Report 9268490 (Version 2)
Quarter: 2013Q4

REPORT INFORMATION
  Report Type: Spontaneous
  Country: US (occurrence: US)
  Receive Date: 20130502
  Receipt Date: 20131004
  Transmission Date: 20140711
  Serious: Yes (Hospitalization, Other)
  Sender: FDA-Public Use
  Company Number: US-B.I. PHARMACEUTICALS,INC./RIDGEFIELD-2013-BI-12156BP

PATIENT
  Age: 77 Year
  Sex: Female
  Weight: 95.25 kg

DRUGS (9)
  1. PRADAXA [Suspect]
     Indication: ANTICOAGULANT THERAPY
     Dosage: 300 MG
     Dates: start: 20110511, end: 20110919
  2. PRADAXA [Suspect]
     Indication: ATRIAL FIBRILLATION
  3. COMBIVENT [Concomitant]
  4. AMIODARONE [Concomitant]
     Dosage: 600 MG
  5. ASPIRIN [Concomitant]
  6. LIPITOR [Concomitant]
  7. B12 [Concomitant]
  8. VOLTAREN [Concomitant]
  9. TRIAMTERENE/HYDROCHLOROTHIAZIDE [Concomitant]

REACTIONS (1)
  - Lower gastrointestinal haemorrhage [Unknown]
